FAERS Safety Report 8311832-1 (Version None)
Quarter: 2012Q2

REPORT INFORMATION
  Report Type: 
  Country: None (occurrence: None)
  Receive Date: 20120425
  Receipt Date: 20120423
  Transmission Date: 20120825
  Serious: Yes (Other)
  Sender: FDA-Public Use
  Company Number: US-PFIZER INC-2012101433

PATIENT
  Sex: Male

DRUGS (2)
  1. NEURONTIN [Suspect]
     Dosage: 300 MG, 3X/DAY, 1 TABLET
     Route: 048
  2. LORTAB [Concomitant]
     Dosage: UNK

REACTIONS (2)
  - IMPAIRED WORK ABILITY [None]
  - COLON CANCER [None]
